FAERS Safety Report 21211449 (Version 1)
Quarter: 2022Q3

REPORT INFORMATION
  Report Type: Spontaneous
  Country: US (occurrence: None)
  Receive Date: 20220812
  Receipt Date: 20220812
  Transmission Date: 20221026
  Serious: Yes (Life-Threatening)
  Sender: FDA-Public Use
  Company Number: None

PATIENT
  Age: 43 Year
  Sex: Male
  Weight: 98 kg

DRUGS (1)
  1. NIRMATRELVIR\RITONAVIR [Suspect]
     Active Substance: NIRMATRELVIR\RITONAVIR
     Dates: start: 20220727, end: 20220801

REACTIONS (3)
  - Drug abuse [None]
  - Suicidal ideation [None]
  - Treatment noncompliance [None]

NARRATIVE: CASE EVENT DATE: 20220801
